FAERS Safety Report 4607194-3 (Version None)
Quarter: 2005Q1

REPORT INFORMATION
  Report Type: 
  Country: None (occurrence: None)
  Receive Date: 20050310
  Receipt Date: 20050222
  Transmission Date: 20050727
  Serious: Yes (Hospitalization)
  Sender: FDA-Public Use
  Company Number: 2005BI001852

PATIENT
  Age: 63 Year
  Sex: Female

DRUGS (6)
  1. AVONEX [Suspect]
     Indication: MULTIPLE SCLEROSIS
     Dosage: 30 UG; QW; IM
     Route: 030
     Dates: start: 20000710
  2. AVONEX [Suspect]
     Indication: MULTIPLE SCLEROSIS
     Dosage: 30U G; QW; IM
     Route: 030
     Dates: start: 20030101
  3. EFFEXOR [Concomitant]
  4. ALBUTEROL [Concomitant]
  5. TAPAZOLE [Concomitant]
  6. INNOPRAN XL [Concomitant]

REACTIONS (3)
  - FALL [None]
  - GAIT DISTURBANCE [None]
  - HIP FRACTURE [None]
